FAERS Safety Report 18844082 (Version 1)
Quarter: 2021Q1

REPORT INFORMATION
  Report Type: Spontaneous
  Country: US (occurrence: US)
  Receive Date: 20210203
  Receipt Date: 20210203
  Transmission Date: 20210419
  Serious: No
  Sender: FDA-Public Use
  Company Number: None

PATIENT
  Age: 39 Year
  Sex: Male

DRUGS (1)
  1. UBROGEPANT (UBROGEPANT 50MG TAB) [Suspect]
     Active Substance: UBROGEPANT
     Indication: MIGRAINE
     Route: 048
     Dates: start: 20201005, end: 20201020

REACTIONS (7)
  - Paraesthesia [None]
  - Dizziness [None]
  - Nausea [None]
  - Gait disturbance [None]
  - Hyperhidrosis [None]
  - Asthenia [None]
  - Vomiting [None]

NARRATIVE: CASE EVENT DATE: 20201020
